FAERS Safety Report 21921070 (Version 2)
Quarter: 2023Q1

REPORT INFORMATION
  Report Type: Spontaneous
  Country: NO (occurrence: NO)
  Receive Date: 20230127
  Receipt Date: 20230310
  Transmission Date: 20230418
  Serious: Yes (Other)
  Sender: FDA-Public Use
  Company Number: NO-BAYER-2023P004272

PATIENT
  Sex: Female

DRUGS (1)
  1. MIRENA [Suspect]
     Active Substance: LEVONORGESTREL
     Indication: Hormonal contraception
     Dosage: 20?G/DAY
     Route: 015
     Dates: start: 20200303, end: 20221010

REACTIONS (10)
  - Crystal nephropathy [Recovered/Resolved]
  - Anxiety [None]
  - Headache [Recovered/Resolved]
  - Fatigue [Recovered/Resolved]
  - Mood swings [Recovered/Resolved]
  - Disturbance in attention [Recovered/Resolved]
  - Stress [Recovered/Resolved]
  - Mood altered [Recovered/Resolved]
  - Amenorrhoea [None]
  - Menstruation irregular [None]

NARRATIVE: CASE EVENT DATE: 20220821
